FAERS Safety Report 25665257 (Version 1)
Quarter: 2025Q3

REPORT INFORMATION
  Report Type: Spontaneous
  Country: AU (occurrence: AU)
  Receive Date: 20250811
  Receipt Date: 20250811
  Transmission Date: 20251020
  Serious: Yes (Other)
  Sender: ASCEND THERAPEUTICS US, LLC
  Company Number: AU-Ascend Therapeutics US, LLC-2182253

PATIENT
  Sex: Female

DRUGS (3)
  1. ESTROGEL [Suspect]
     Active Substance: ESTRADIOL
     Indication: Product used for unknown indication
     Dates: end: 202506
  2. ESTROGEL [Suspect]
     Active Substance: ESTRADIOL
     Dates: end: 202506
  3. PROMETRIUM [Suspect]
     Active Substance: PROGESTERONE
     Dates: end: 202506

REACTIONS (2)
  - Pneumonia [Unknown]
  - Influenza [Unknown]
